FAERS Safety Report 9510047 (Version 1)
Quarter: 2013Q3

REPORT INFORMATION
  Report Type: Spontaneous
  Country: US (occurrence: US)
  Receive Date: 20130909
  Receipt Date: 20130909
  Transmission Date: 20140515
  Serious: Yes (Death)
  Sender: FDA-Public Use
  Company Number: US-BRISTOL-MYERS SQUIBB COMPANY-17141458

PATIENT
  Age: 53 Year
  Sex: Male

DRUGS (4)
  1. ABILIFY TABS 5 MG [Suspect]
  2. WELLBUTRIN [Concomitant]
  3. LITHIUM [Concomitant]
  4. PROZAC [Concomitant]

REACTIONS (1)
  - Hyperthermia malignant [Fatal]
